FAERS Safety Report 10228746 (Version 1)
Quarter: 2014Q2

REPORT INFORMATION
  Report Type: Spontaneous
  Country: US (occurrence: US)
  Receive Date: 20140610
  Receipt Date: 20140610
  Transmission Date: 20141212
  Serious: Yes (Other)
  Sender: FDA-Public Use
  Company Number: US-FRI-1000067933

PATIENT
  Age: 86 Year
  Sex: Female

DRUGS (2)
  1. NAMENDA [Suspect]
     Indication: DEMENTIA ALZHEIMER^S TYPE
     Dosage: 20MG
     Route: 048
     Dates: start: 2013
  2. PREVAGEN [Concomitant]
     Indication: DEMENTIA ALZHEIMER^S TYPE
     Dosage: DAILY

REACTIONS (4)
  - Hip fracture [Recovered/Resolved]
  - Upper limb fracture [Recovered/Resolved]
  - Fall [Recovered/Resolved]
  - Dizziness [Recovered/Resolved]
